FAERS Safety Report 13306018 (Version 2)
Quarter: 2018Q2

REPORT INFORMATION
  Report Type: Spontaneous
  Country: US (occurrence: US)
  Receive Date: 20170308
  Receipt Date: 20180514
  Transmission Date: 20180711
  Serious: No
  Sender: FDA-Public Use
  Company Number: US-VERTEX PHARMACEUTICALS-2017-001158

PATIENT
  Sex: Female
  Weight: 57 kg

DRUGS (3)
  1. ORKAMBI [Suspect]
     Active Substance: IVACAFTOR\LUMACAFTOR
     Indication: CYSTIC FIBROSIS
     Dosage: 2 DOSAGE FORM (200/125 MG EACH), BID
     Route: 048
     Dates: start: 201508, end: 201804
  2. SKYLA [Suspect]
     Active Substance: LEVONORGESTREL
     Indication: OVARIAN CYST
     Dosage: UNK
     Route: 015
     Dates: end: 201610
  3. ENSKYCE [Interacting]
     Active Substance: DESOGESTREL\ETHINYL ESTRADIOL
     Indication: OVARIAN CYST
     Dosage: UNK UNK, QD
     Route: 048

REACTIONS (3)
  - Ovarian cyst [Unknown]
  - Drug interaction [Recovered/Resolved]
  - Ovarian cyst ruptured [Unknown]
